FAERS Safety Report 5100819-8 (Version None)
Quarter: 2006Q3

REPORT INFORMATION
  Report Type: 
  Country: None (occurrence: None)
  Receive Date: 20060906
  Receipt Date: 20060821
  Transmission Date: 20061208
  Serious: Yes (Death)
  Sender: FDA-Public Use
  Company Number: DSA_28621_2006

PATIENT
  Age: 5 Year
  Sex: Male

DRUGS (1)
  1. LORAX [Suspect]
     Dosage: DF ONCE PO
     Route: 048
     Dates: start: 20060801, end: 20060801

REACTIONS (5)
  - BACK INJURY [None]
  - GUN SHOT WOUND [None]
  - POISONING DELIBERATE [None]
  - SEDATION [None]
  - VICTIM OF HOMICIDE [None]
